FAERS Safety Report 19122974 (Version 1)
Quarter: 2021Q2

REPORT INFORMATION
  Report Type: Spontaneous
  Country: CA (occurrence: CA)
  Receive Date: 20210412
  Receipt Date: 20210412
  Transmission Date: 20210717
  Serious: Yes (Hospitalization, Other)
  Sender: FDA-Public Use
  Company Number: CA-PURDUE-USA-2020-0163428

PATIENT
  Sex: Female

DRUGS (6)
  1. KETAMINE [Suspect]
     Active Substance: KETAMINE
     Indication: DRUG ABUSE
     Dosage: UNK
     Route: 065
  2. METHAMPHETAMINE [Suspect]
     Active Substance: METHAMPHETAMINE
     Indication: DRUG ABUSE
     Dosage: UNK
     Route: 065
  3. HYDROMORPHONE HCL (SIMILAR TO 19?892) [Suspect]
     Active Substance: HYDROMORPHONE HYDROCHLORIDE
     Indication: DRUG ABUSE
     Dosage: UNK
     Route: 065
  4. METHYLENEDIOXYMETHAMPHETAMINE [Suspect]
     Active Substance: MIDOMAFETAMINE
     Indication: DRUG ABUSE
     Dosage: UNK
     Route: 065
  5. COCAINE [Suspect]
     Active Substance: COCAINE
     Indication: DRUG ABUSE
     Dosage: UNK
     Route: 065
  6. OXYBATE SODIUM [Suspect]
     Active Substance: SODIUM OXYBATE
     Indication: DRUG ABUSE
     Dosage: UNK
     Route: 065

REACTIONS (6)
  - Substance dependence [Recovered/Resolved]
  - Drug withdrawal syndrome [Recovered/Resolved]
  - Endocarditis [Recovered/Resolved]
  - Gait disturbance [Recovered/Resolved]
  - Substance abuse [Recovered/Resolved]
  - Cardiac arrest [Recovered/Resolved]
